FAERS Safety Report 4940652-0 (Version None)
Quarter: 2006Q1

REPORT INFORMATION
  Report Type: 
  Country: None (occurrence: None)
  Receive Date: 20060203
  Receipt Date: 20060203
  Transmission Date: 20060701
  Serious: Yes (Other)
  Sender: FDA-Public Use
  Company Number: MK200412-0321-1

PATIENT
  Sex: Male

DRUGS (2)
  1. METHYLPHENIDATE HCL [Suspect]
     Dosage: 5MG
     Dates: start: 20041201, end: 20041208
  2. OXYCODONE HCL [Suspect]
     Indication: PAIN
     Dosage: 5MG
     Dates: start: 20041201, end: 20041217

REACTIONS (5)
  - ANOREXIA [None]
  - ARTHRALGIA [None]
  - DRUG INEFFECTIVE [None]
  - INSOMNIA [None]
  - MEDICATION ERROR [None]
